FAERS Safety Report 8955777 (Version 1)
Quarter: 2012Q4

REPORT INFORMATION
  Report Type: 
  Country: US (occurrence: US)
  Receive Date: 20121210
  Receipt Date: 20121210
  Transmission Date: 20130627
  Serious: No
  Sender: FDA-Public Use
  Company Number: US-009507513-1211USA012829

PATIENT
  Age: 47 Year
  Sex: Male
  Weight: 98.87 kg

DRUGS (1)
  1. CLARITIN-D 24 HOUR [Suspect]
     Indication: RHINORRHOEA

REACTIONS (1)
  - Overdose [Unknown]
